FAERS Safety Report 21940023 (Version 1)
Quarter: 2023Q1

REPORT INFORMATION
  Report Type: Report from Study
  Country: US (occurrence: US)
  Receive Date: 20230201
  Receipt Date: 20230201
  Transmission Date: 20230418
  Serious: No
  Sender: FDA-Public Use
  Company Number: US-EXELIXIS-CABO-22049476

PATIENT
  Sex: Male

DRUGS (6)
  1. CABOMETYX [Suspect]
     Active Substance: CABOZANTINIB S-MALATE
     Indication: Renal cancer
     Dosage: 40 MG, QD
     Route: 048
     Dates: start: 202111, end: 202204
  2. CABOMETYX [Suspect]
     Active Substance: CABOZANTINIB S-MALATE
     Dosage: 40 MG, 5 DAYS ON AND THEN 2 DAYS OFF
     Route: 048
  3. MELOXICAM [Concomitant]
     Active Substance: MELOXICAM
     Dosage: UNK
  4. CANDESARTAN CILEXETIL AND HYDROCHLOROTHIAZIDE [Concomitant]
     Active Substance: CANDESARTAN CILEXETIL\HYDROCHLOROTHIAZIDE
     Dosage: UNK
  5. ACETAMINOPHEN [Concomitant]
     Active Substance: ACETAMINOPHEN
     Dosage: UNK
  6. BENADRYL [Concomitant]
     Active Substance: DIPHENHYDRAMINE HYDROCHLORIDE
     Dosage: UNK

REACTIONS (5)
  - Pruritus [Unknown]
  - Diarrhoea [Recovering/Resolving]
  - Taste disorder [Unknown]
  - Weight decreased [Unknown]
  - Inappropriate schedule of product administration [Unknown]
